FAERS Safety Report 20683968 (Version 1)
Quarter: 2022Q2

REPORT INFORMATION
  Report Type: Spontaneous
  Country: US (occurrence: None)
  Receive Date: 20220405
  Receipt Date: 20220405
  Transmission Date: 20220721
  Serious: Yes (Hospitalization)
  Sender: FDA-Public Use
  Company Number: None

PATIENT
  Sex: Male

DRUGS (4)
  1. IMATINIB MESYLATE [Suspect]
     Active Substance: IMATINIB MESYLATE
     Indication: Anaemia of malignant disease
     Route: 048
     Dates: start: 20210514
  2. IMATINIB MES [Concomitant]
  3. NEO/POLY/HC SUS [Concomitant]
  4. ONDANSETRON [Concomitant]

REACTIONS (2)
  - Fistula repair [None]
  - Therapy interrupted [None]
